FAERS Safety Report 8303933-9 (Version None)
Quarter: 2012Q2

REPORT INFORMATION
  Report Type: 
  Country: None (occurrence: None)
  Receive Date: 20120423
  Receipt Date: 20120418
  Transmission Date: 20120825
  Serious: Yes (Death, Hospitalization, Other)
  Sender: FDA-Public Use
  Company Number: PHHY2012BR033117

PATIENT
  Sex: Female
  Weight: 116 kg

DRUGS (8)
  1. DIOVAN [Suspect]
     Dosage: 1 DF (160 MG VALSARTAN), PER DAY
  2. DIOVAN [Suspect]
     Indication: HYPERTENSION
     Dosage: 1 DF (160 MG VALSARTAN), PER DAY
  3. LEVOTHYROXINE SODIUM [Concomitant]
     Dosage: 50 UG, UNK
  4. DIOVAN [Suspect]
     Dosage: 1 DF (320 MG VALSARTAN), PER DAY
  5. GLIMEPIRIDE [Concomitant]
     Indication: DIABETES MELLITUS
     Dosage: 1 DF IN THE MORNING
     Route: 048
  6. LEVOTHYROXINE SODIUM [Concomitant]
     Indication: DIABETES MELLITUS
     Dosage: 125 UG, UNK
  7. INSULIN [Concomitant]
  8. ALPRAZOLAM [Concomitant]

REACTIONS (4)
  - HYPERTENSION [None]
  - RENAL FAILURE CHRONIC [None]
  - BLOOD PRESSURE FLUCTUATION [None]
  - URINARY TRACT INFECTION [None]
